FAERS Safety Report 23592108 (Version 1)
Quarter: 2024Q1

REPORT INFORMATION
  Report Type: Spontaneous
  Country: FR (occurrence: FR)
  Receive Date: 20240304
  Receipt Date: 20240304
  Transmission Date: 20240410
  Serious: Yes (Hospitalization)
  Sender: FDA-Public Use
  Company Number: None

PATIENT
  Age: 56 Year
  Sex: Male
  Weight: 81 kg

DRUGS (3)
  1. ALIMTA [Suspect]
     Active Substance: PEMETREXED DISODIUM
     Indication: Lung adenocarcinoma
     Dosage: 750 MG, CYCLICAL
     Route: 042
     Dates: start: 20230719, end: 20231128
  2. KEYTRUDA [Concomitant]
     Active Substance: PEMBROLIZUMAB
     Indication: Product used for unknown indication
     Dosage: UNK, UNKNOWN
     Route: 042
     Dates: start: 20230921, end: 20231128
  3. CISPLATIN [Concomitant]
     Active Substance: CISPLATIN
     Indication: Lung adenocarcinoma
     Dosage: UNK, UNKNOWN
     Route: 042
     Dates: start: 20230719, end: 20230921

REACTIONS (1)
  - Proctitis [Recovered/Resolved]

NARRATIVE: CASE EVENT DATE: 20231219
